FAERS Safety Report 9010469 (Version 1)
Quarter: 2013Q1

REPORT INFORMATION
  Report Type: Report from Study
  Country: US (occurrence: US)
  Receive Date: 20130109
  Receipt Date: 20130109
  Transmission Date: 20140127
  Serious: Yes (Death)
  Sender: FDA-Public Use
  Company Number: US-ROCHE-1171268

PATIENT
  Sex: Female

DRUGS (1)
  1. CAPECITABINE [Suspect]
     Indication: NEOPLASM MALIGNANT
     Dosage: 3 TABLETS IN TWICE A DAY
     Route: 065

REACTIONS (3)
  - Diarrhoea [Recovering/Resolving]
  - Gastroenteritis viral [Unknown]
  - Death [Fatal]
